FAERS Safety Report 4746674-7 (Version None)
Quarter: 2005Q3

REPORT INFORMATION
  Report Type: 
  Country: None (occurrence: None)
  Receive Date: 20050815
  Receipt Date: 20050805
  Transmission Date: 20060218
  Serious: Yes (Other)
  Sender: FDA-Public Use
  Company Number: 2005112384

PATIENT
  Age: 61 Year
  Sex: Female
  Weight: 54.4316 kg

DRUGS (4)
  1. LIPITOR [Suspect]
     Indication: BLOOD CHOLESTEROL INCREASED
     Dosage: 10 MG (10 MG, 1 IN 1 D)
     Dates: start: 20050603
  2. ALTACE [Concomitant]
  3. LORAZEPAM [Concomitant]
  4. PAXIL [Concomitant]

REACTIONS (5)
  - CARDIAC VALVE DISEASE [None]
  - DRUG DOSE OMISSION [None]
  - EXERCISE TEST ABNORMAL [None]
  - INSOMNIA [None]
  - NOCTURIA [None]
